FAERS Safety Report 7404098-8 (Version None)
Quarter: 2011Q2

REPORT INFORMATION
  Report Type: 
  Country: None (occurrence: None)
  Receive Date: 20110408
  Receipt Date: 20110316
  Transmission Date: 20111010
  Serious: No
  Sender: FDA-Public Use
  Company Number: US-B.I. PHARMACEUTICALS,INC./RIDGEFIELD-2011-BP-08186BP

PATIENT
  Sex: Female

DRUGS (6)
  1. PRADAXA [Suspect]
     Indication: ATRIAL FIBRILLATION
     Dosage: 300 MG
     Route: 048
     Dates: start: 20110301
  2. ROPINIROLE [Concomitant]
     Indication: RESTLESS LEGS SYNDROME
     Dates: start: 20100301
  3. METOPROLOL [Concomitant]
     Indication: HYPERTENSION
     Dates: start: 20100301
  4. AMLODIPINE [Concomitant]
     Indication: HYPERTENSION
  5. C PAP MACHINE [Concomitant]
     Indication: SLEEP APNOEA SYNDROME
     Dates: start: 20100301
  6. LEVOTHYROXINE [Concomitant]
     Indication: PARATHYROID DISORDER
     Dates: start: 20090301

REACTIONS (3)
  - MOUTH HAEMORRHAGE [None]
  - LIP BLISTER [None]
  - LETHARGY [None]
